FAERS Safety Report 7932391-9 (Version None)
Quarter: 2011Q4

REPORT INFORMATION
  Report Type: 
  Country: None (occurrence: None)
  Receive Date: 20111122
  Receipt Date: 20111115
  Transmission Date: 20120403
  Serious: Yes (Hospitalization)
  Sender: FDA-Public Use
  Company Number: GB-BRISTOL-MYERS SQUIBB COMPANY-16089310

PATIENT
  Age: 37 Year
  Sex: Female

DRUGS (3)
  1. ATRIPLA [Suspect]
     Indication: HIV INFECTION
     Dosage: 1 DF= 1 TABLET
     Route: 048
     Dates: start: 20100301, end: 20100801
  2. TRUVADA [Suspect]
     Indication: HIV INFECTION
     Dosage: 1 DF = 1 TABLET
     Route: 048
     Dates: start: 20100301, end: 20100801
  3. EFAVIRENZ [Suspect]
     Indication: HIV INFECTION
     Route: 048
     Dates: start: 20100301, end: 20100801

REACTIONS (2)
  - CONVULSION [None]
  - LOWER RESPIRATORY TRACT INFECTION [None]
